FAERS Safety Report 24047450 (Version 1)
Quarter: 2024Q3

REPORT INFORMATION
  Report Type: Spontaneous
  Country: AT (occurrence: AT)
  Receive Date: 20240703
  Receipt Date: 20240703
  Transmission Date: 20241017
  Serious: Yes (Other)
  Sender: MYLAN
  Company Number: None

PATIENT
  Age: 28 Year
  Sex: Female
  Weight: 65 kg

DRUGS (42)
  1. OXAZEPAM [Suspect]
     Active Substance: OXAZEPAM
     Indication: Product used for unknown indication
     Dosage: 15 MILLIGRAM
     Route: 065
     Dates: start: 20161208, end: 20161208
  2. OXAZEPAM [Suspect]
     Active Substance: OXAZEPAM
     Dosage: 30 MILLIGRAM
     Route: 065
     Dates: start: 20161221, end: 20161223
  3. OXAZEPAM [Suspect]
     Active Substance: OXAZEPAM
     Dosage: 15 MILLIGRAM
     Route: 065
     Dates: start: 20161224, end: 20161224
  4. DOMINAL (PROTHIPENDYL HYDROCHLORIDE) [Suspect]
     Active Substance: PROTHIPENDYL HYDROCHLORIDE
     Indication: Product used for unknown indication
     Dosage: 80 MILLIGRAM
     Route: 065
     Dates: start: 20161215, end: 20161215
  5. DOMINAL (PROTHIPENDYL HYDROCHLORIDE) [Suspect]
     Active Substance: PROTHIPENDYL HYDROCHLORIDE
     Dosage: 40 MILLIGRAM
     Route: 065
     Dates: start: 20161216, end: 20161219
  6. DOMINAL (PROTHIPENDYL HYDROCHLORIDE) [Suspect]
     Active Substance: PROTHIPENDYL HYDROCHLORIDE
     Dosage: 80 MILLIGRAM
     Route: 065
     Dates: start: 20161220, end: 20161226
  7. DOMINAL (PROTHIPENDYL HYDROCHLORIDE) [Suspect]
     Active Substance: PROTHIPENDYL HYDROCHLORIDE
     Dosage: 175 MILLIGRAM
     Route: 065
     Dates: start: 20170117, end: 20170123
  8. VENLAFAXINE [Suspect]
     Active Substance: VENLAFAXINE HYDROCHLORIDE
     Indication: Product used for unknown indication
     Dosage: 75 MILLIGRAM
     Route: 065
     Dates: start: 20161216, end: 20161218
  9. LAMICTAL [Suspect]
     Active Substance: LAMOTRIGINE
     Indication: Product used for unknown indication
     Dosage: 25 MILLIGRAM
     Route: 065
     Dates: start: 201611, end: 20161212
  10. LAMICTAL [Suspect]
     Active Substance: LAMOTRIGINE
     Dosage: 50 MILLIGRAM
     Route: 065
     Dates: start: 20161213, end: 20161219
  11. LAMICTAL [Suspect]
     Active Substance: LAMOTRIGINE
     Dosage: 75 MILLIGRAM
     Route: 065
     Dates: start: 20161220, end: 20161226
  12. LAMICTAL [Suspect]
     Active Substance: LAMOTRIGINE
     Dosage: 100 MILLIGRAM
     Route: 065
     Dates: start: 20161227, end: 20170102
  13. LAMICTAL [Suspect]
     Active Substance: LAMOTRIGINE
     Dosage: 125 MILLIGRAM
     Route: 065
     Dates: start: 20170103, end: 20170108
  14. LAMICTAL [Suspect]
     Active Substance: LAMOTRIGINE
     Dosage: 150 MILLIGRAM
     Route: 065
     Dates: start: 20170110, end: 20170116
  15. LAMICTAL [Suspect]
     Active Substance: LAMOTRIGINE
     Dosage: 175 MILLIGRAM
     Route: 065
     Dates: start: 20170117, end: 20170123
  16. LAMICTAL [Suspect]
     Active Substance: LAMOTRIGINE
     Dosage: 225 MILLIGRAM
     Route: 065
     Dates: start: 20170109, end: 20170109
  17. LAMICTAL [Suspect]
     Active Substance: LAMOTRIGINE
     Dosage: 200 MILLIGRAM
     Route: 065
     Dates: start: 20170124
  18. INDERAL [Suspect]
     Active Substance: PROPRANOLOL HYDROCHLORIDE
     Indication: Product used for unknown indication
     Dosage: 10-20 MG
     Route: 065
     Dates: start: 20161208, end: 20161213
  19. INDERAL [Suspect]
     Active Substance: PROPRANOLOL HYDROCHLORIDE
     Dosage: 10 MILLIGRAM
     Route: 065
     Dates: start: 20161215, end: 20161217
  20. INDERAL [Suspect]
     Active Substance: PROPRANOLOL HYDROCHLORIDE
     Dosage: 10 MILLIGRAM
     Route: 065
     Dates: start: 20161220, end: 20161226
  21. INDERAL [Suspect]
     Active Substance: PROPRANOLOL HYDROCHLORIDE
     Dosage: 10 MILLIGRAM
     Route: 065
     Dates: start: 20161231, end: 20161231
  22. INDERAL [Suspect]
     Active Substance: PROPRANOLOL HYDROCHLORIDE
     Dosage: 10 MILLIGRAM
     Route: 065
     Dates: start: 20170111, end: 20170113
  23. ZOLPIDEM TARTRATE [Suspect]
     Active Substance: ZOLPIDEM TARTRATE
     Indication: Product used for unknown indication
     Dosage: 5 MILLIGRAM
     Route: 065
     Dates: start: 20161212, end: 20161213
  24. ZOLPIDEM TARTRATE [Suspect]
     Active Substance: ZOLPIDEM TARTRATE
     Dosage: 10 MILLIGRAM
     Route: 065
     Dates: start: 20161214, end: 20161214
  25. ZOLPIDEM TARTRATE [Suspect]
     Active Substance: ZOLPIDEM TARTRATE
     Dosage: 5 MILLIGRAM
     Route: 065
     Dates: start: 20170113, end: 20170123
  26. ABILIFY [Suspect]
     Active Substance: ARIPIPRAZOLE
     Indication: Product used for unknown indication
     Dosage: 5 MILLIGRAM, QD
     Route: 065
     Dates: start: 20161214, end: 20161221
  27. CHOLECALCIFEROL\CHOLESTEROL [Suspect]
     Active Substance: CHOLECALCIFEROL\CHOLESTEROL
     Indication: Product used for unknown indication
     Dosage: 30 GTT DROPS
     Route: 065
     Dates: start: 2016
  28. CHOLECALCIFEROL\CHOLESTEROL [Suspect]
     Active Substance: CHOLECALCIFEROL\CHOLESTEROL
     Dosage: 30 MILLIGRAM
     Route: 065
  29. WELLBUTRIN [Suspect]
     Active Substance: BUPROPION HYDROCHLORIDE
     Indication: Product used for unknown indication
     Dosage: 150 MILLIGRAM
     Route: 065
     Dates: start: 20161207, end: 20161215
  30. WELLBUTRIN [Suspect]
     Active Substance: BUPROPION HYDROCHLORIDE
     Dosage: 300 MILLIGRAM
     Route: 065
     Dates: start: 20170111, end: 20170117
  31. WELLBUTRIN [Suspect]
     Active Substance: BUPROPION HYDROCHLORIDE
     Dosage: 150 MILLIGRAM
     Route: 065
     Dates: start: 20161227, end: 20170110
  32. WELLBUTRIN [Suspect]
     Active Substance: BUPROPION HYDROCHLORIDE
     Dosage: 150 MILLIGRAM
     Route: 065
     Dates: start: 20170118
  33. Temesta [Concomitant]
     Indication: Product used for unknown indication
     Dosage: 1 MILLIGRAM
     Route: 065
     Dates: start: 20161223, end: 20161224
  34. Temesta [Concomitant]
     Dosage: 1.5 MILLIGRAM
     Route: 065
     Dates: start: 20161225, end: 20161225
  35. Temesta [Concomitant]
     Dosage: 1 MILLIGRAM
     Route: 065
     Dates: start: 20161226, end: 20161226
  36. Temesta [Concomitant]
     Dosage: 0.5 MILLIGRAM
     Route: 065
     Dates: start: 20161227, end: 20161227
  37. DOXAZOSIN [Concomitant]
     Active Substance: DOXAZOSIN MESYLATE
     Indication: Product used for unknown indication
     Dosage: 2 MILLIGRAM
     Route: 065
     Dates: start: 20161223, end: 20161224
  38. DOXAZOSIN [Concomitant]
     Active Substance: DOXAZOSIN MESYLATE
     Dosage: 1 MILLIGRAM
     Route: 065
     Dates: start: 20170103, end: 20170106
  39. DOXAZOSIN [Concomitant]
     Active Substance: DOXAZOSIN MESYLATE
     Dosage: 2 MILLIGRAM
     Route: 065
     Dates: start: 20170107, end: 20170108
  40. CITALOPRAM [Concomitant]
     Active Substance: CITALOPRAM\CITALOPRAM HYDROBROMIDE
     Indication: Product used for unknown indication
     Dosage: 10 MILLIGRAM
     Route: 065
     Dates: start: 20161223, end: 20161224
  41. CITALOPRAM [Concomitant]
     Active Substance: CITALOPRAM\CITALOPRAM HYDROBROMIDE
     Dosage: 20 MILLIGRAM
     Route: 065
     Dates: start: 20161225, end: 20161225
  42. Kalioral [Concomitant]
     Indication: Product used for unknown indication
     Dosage: 1 MILLIGRAM
     Route: 065
     Dates: start: 20161206, end: 20161209

REACTIONS (5)
  - Nightmare [Unknown]
  - Galactorrhoea [Recovering/Resolving]
  - Urinary retention [Recovered/Resolved]
  - Vision blurred [Unknown]
  - Visual impairment [Recovered/Resolved]

NARRATIVE: CASE EVENT DATE: 20161215
